FAERS Safety Report 24693900 (Version 1)
Quarter: 2024Q4

REPORT INFORMATION
  Report Type: Spontaneous
  Country: CA (occurrence: CA)
  Receive Date: 20241204
  Receipt Date: 20241204
  Transmission Date: 20250114
  Serious: Yes (Death, Other)
  Sender: ASTELLAS
  Company Number: CA-ROCHE-10000144840

PATIENT
  Age: 78 Year
  Sex: Female

DRUGS (1)
  1. ERLOTINIB HYDROCHLORIDE [Suspect]
     Active Substance: ERLOTINIB HYDROCHLORIDE
     Indication: Vulval cancer
     Route: 048

REACTIONS (1)
  - Death [Fatal]
